FAERS Safety Report 5809901-0 (Version None)
Quarter: 2008Q3

REPORT INFORMATION
  Report Type: 
  Country: None (occurrence: None)
  Receive Date: 20080715
  Receipt Date: 20080708
  Transmission Date: 20090109
  Serious: Yes (Other)
  Sender: FDA-Public Use
  Company Number: US-BRISTOL-MYERS SQUIBB COMPANY-14248082

PATIENT
  Age: 76 Year
  Sex: Male

DRUGS (5)
  1. ORENCIA [Suspect]
     Indication: RHEUMATOID ARTHRITIS
     Dosage: INITIATED PRIOR TO NOV-2007. TREATED FOR MORE THAN 1 YEAR. HAD 3 TREATMENTS AROUND 10/2007.
     Route: 042
     Dates: end: 20080501
  2. IMURAN [Concomitant]
  3. PREDNISONE TAB [Concomitant]
  4. ENABLEX [Concomitant]
  5. FOLIC ACID [Concomitant]

REACTIONS (1)
  - MYCOSIS FUNGOIDES [None]
